FAERS Safety Report 9007324 (Version 1)
Quarter: 2013Q1

REPORT INFORMATION
  Report Type: Spontaneous
  Country: US (occurrence: US)
  Receive Date: 20130110
  Receipt Date: 20130110
  Transmission Date: 20140127
  Serious: Yes (Hospitalization, Other)
  Sender: FDA-Public Use
  Company Number: CHPA2013US000508

PATIENT
  Age: 51 Year
  Sex: Male
  Weight: 181.41 kg

DRUGS (8)
  1. PROBIOTICS [Concomitant]
     Dosage: UNK
     Dates: start: 201211
  2. ACIDOPHILIS [Concomitant]
     Dosage: UNK, UNK
     Dates: start: 2010, end: 2012
  3. LISINOPRIL [Concomitant]
     Indication: BLOOD PRESSURE
  4. THERAPEUTIC MINERAL ICE [Suspect]
     Indication: MUSCLE STRAIN
     Dosage: UNK, UNK
     Route: 061
     Dates: start: 1985
  5. FUROSEMIDE [Suspect]
     Dosage: UNK
     Dates: start: 1996
  6. LISINOPRIL HCTZ [Concomitant]
     Dosage: UNK, UNK
     Dates: start: 1996
  7. CEPHALEXIN [Concomitant]
     Dosage: 500 MG, UNK
     Dates: start: 2008
  8. CENTURY [Concomitant]
     Dosage: UNK, UNK
     Dates: start: 200410

REACTIONS (13)
  - Cellulitis [Recovered/Resolved]
  - Diabetes mellitus [Not Recovered/Not Resolved]
  - Lymphatic disorder [Not Recovered/Not Resolved]
  - Lymphoedema [Recovered/Resolved]
  - Ligament sprain [Not Recovered/Not Resolved]
  - Muscle strain [Not Recovered/Not Resolved]
  - Gait disturbance [Not Recovered/Not Resolved]
  - Walking aid user [Not Recovered/Not Resolved]
  - Arthralgia [Not Recovered/Not Resolved]
  - Muscle rupture [Not Recovered/Not Resolved]
  - Muscular weakness [Not Recovered/Not Resolved]
  - Micturition urgency [Not Recovered/Not Resolved]
  - Umbilical hernia [Not Recovered/Not Resolved]
